FAERS Safety Report 16722054 (Version 2)
Quarter: 2019Q3

REPORT INFORMATION
  Report Type: Spontaneous
  Country: US (occurrence: US)
  Receive Date: 20190820
  Receipt Date: 20190820
  Transmission Date: 20191005
  Serious: Yes (Hospitalization, Other)
  Sender: FDA-Public Use
  Company Number: US-SHIRE-US201926461

PATIENT
  Sex: Male

DRUGS (5)
  1. VALPROIC ACID. [Concomitant]
     Active Substance: VALPROIC ACID
     Indication: PRODUCT USED FOR UNKNOWN INDICATION
  2. ADDERALL XR [Suspect]
     Active Substance: AMPHETAMINE ASPARTATE\AMPHETAMINE SULFATE\DEXTROAMPHETAMINE SACCHARATE\DEXTROAMPHETAMINE SULFATE
     Indication: ATTENTION DEFICIT/HYPERACTIVITY DISORDER
     Dosage: UNK
     Route: 005
  3. DIVALPROEX [Concomitant]
     Active Substance: DIVALPROEX SODIUM
     Indication: PRODUCT USED FOR UNKNOWN INDICATION
  4. ABILIFY MAINTENA [Suspect]
     Active Substance: ARIPIPRAZOLE
     Indication: SCHIZOPHRENIA
     Dosage: 400 MILLIGRAM, 1X A MONTH
     Route: 030
     Dates: start: 201706, end: 20180427
  5. ABILIFY MAINTENA [Suspect]
     Active Substance: ARIPIPRAZOLE
     Dosage: UNK
     Route: 030
     Dates: start: 20190713

REACTIONS (13)
  - Headache [Unknown]
  - Product dose omission [Unknown]
  - Urine analysis abnormal [Unknown]
  - Confusional state [Unknown]
  - Drug monitoring procedure not performed [Unknown]
  - Road traffic accident [Unknown]
  - Drug dependence [Unknown]
  - Anger [Unknown]
  - Eating disorder [Unknown]
  - Weight increased [Unknown]
  - Infection [Unknown]
  - Hydrocephalus [Unknown]
  - Aggression [Unknown]
